FAERS Safety Report 4480989-5 (Version None)
Quarter: 2004Q4

REPORT INFORMATION
  Report Type: 
  Country: None (occurrence: None)
  Receive Date: 20041019
  Receipt Date: 20041019
  Transmission Date: 20050328
  Serious: Yes (Hospitalization)
  Sender: FDA-Public Use
  Company Number: None

PATIENT
  Age: 54 Year
  Sex: Female
  Weight: 60.782 kg

DRUGS (2)
  1. IRINOTECAN HCL [Suspect]
     Indication: ANAL CANCER
     Dosage: 100 MG /M2 D1,8 Q CYCLE IV
     Route: 042
     Dates: start: 20040916, end: 20041014
  2. CAPECITABINE [Suspect]
     Indication: ANAL CANCER
     Dosage: 2000 MG/M2 D1-14 Q CYCLE PO
     Route: 048
     Dates: start: 20040917, end: 20041014

REACTIONS (1)
  - FATIGUE [None]
